FAERS Safety Report 5569050-6 (Version None)
Quarter: 2007Q4

REPORT INFORMATION
  Report Type: 
  Country: None (occurrence: None)
  Receive Date: 20071220
  Receipt Date: 20070723
  Transmission Date: 20080405
  Serious: No
  Sender: FDA-Public Use
  Company Number: A0654099A

PATIENT
  Age: 76 Year
  Sex: Male
  Weight: 81.8 kg

DRUGS (3)
  1. AVODART [Suspect]
     Indication: BENIGN PROSTATIC HYPERPLASIA
     Dosage: .5MG PER DAY
     Route: 048
     Dates: start: 20060801, end: 20070501
  2. LIPITOR [Concomitant]
  3. SINGULAIR [Concomitant]

REACTIONS (4)
  - BREAST ENLARGEMENT [None]
  - BREAST PAIN [None]
  - BREAST TENDERNESS [None]
  - NIPPLE PAIN [None]
